FAERS Safety Report 11891094 (Version 4)
Quarter: 2016Q2

REPORT INFORMATION
  Report Type: Report from Study
  Country: ID (occurrence: ID)
  Receive Date: 20160106
  Receipt Date: 20160405
  Transmission Date: 20160815
  Serious: Yes (Other)
  Sender: FDA-Public Use
  Company Number: ID-ROCHE-1689405

PATIENT
  Age: 66 Year
  Sex: Female

DRUGS (2)
  1. BONDRONAT [Suspect]
     Active Substance: IBANDRONIC ACID
     Indication: BONE CANCER METASTATIC
     Route: 065
  2. CISPLATIN. [Suspect]
     Active Substance: CISPLATIN
     Indication: PRODUCT USED FOR UNKNOWN INDICATION
     Route: 065

REACTIONS (7)
  - Anaemia [Unknown]
  - Asthenia [Recovered/Resolved]
  - Metastases to stomach [Unknown]
  - Thrombocytopenia [Unknown]
  - Abdominal pain [Recovered/Resolved]
  - Gastritis [Recovered/Resolved]
  - Leukopenia [Unknown]
